FAERS Safety Report 11077224 (Version 1)
Quarter: 2015Q2

REPORT INFORMATION
  Report Type: Spontaneous
  Country: GB (occurrence: GB)
  Receive Date: 20150429
  Receipt Date: 20150429
  Transmission Date: 20150821
  Serious: Yes (Other)
  Sender: FDA-Public Use
  Company Number: ALCN2015GB002787

PATIENT
  Age: 65 Year
  Sex: Male

DRUGS (1)
  1. MAXITROL [Suspect]
     Active Substance: DEXAMETHASONE\NEOMYCIN SULFATE\POLYMYXIN B SULFATE
     Indication: POSTOPERATIVE CARE
     Dosage: 1 DF, QID
     Route: 047

REACTIONS (6)
  - Visual acuity reduced [Unknown]
  - Ocular hyperaemia [Unknown]
  - Ulcerative keratitis [Unknown]
  - Eye irritation [Unknown]
  - Corneal perforation [Unknown]
  - Lacrimation increased [Unknown]
